FAERS Safety Report 4354329-6 (Version None)
Quarter: 2004Q2

REPORT INFORMATION
  Report Type: 
  Country: None (occurrence: None)
  Receive Date: 20040503
  Receipt Date: 20040419
  Transmission Date: 20050107
  Serious: Yes (Hospitalization)
  Sender: FDA-Public Use
  Company Number: 2002GB02751

PATIENT
  Age: 16 Year
  Sex: Female

DRUGS (7)
  1. PROPOFOL [Suspect]
     Indication: ANAESTHESIA
     Dosage: 5 ML ONCE IA
     Route: 014
  2. MIDAZOLAM HCL [Suspect]
     Indication: ANAESTHESIA
     Dosage: 1.5 MG ONCE IA
     Route: 014
  3. MIDAZOLAM HCL [Suspect]
     Indication: SEDATION
     Dosage: 1.5 MG ONCE IA
     Route: 014
  4. PETHIDINE [Suspect]
     Indication: ANALGESIC EFFECT
     Dosage: 50 MG ONCE IA
     Route: 014
  5. METOCLOPRAMIDE [Suspect]
     Indication: ANAESTHESIA
     Dosage: 10 MG ONCE IA
     Route: 014
  6. GLUCOSE [Concomitant]
  7. SEVOFLURANE [Concomitant]

REACTIONS (7)
  - ERYTHEMA [None]
  - INJECTION SITE PAIN [None]
  - MEDICATION ERROR [None]
  - MUSCULOSKELETAL STIFFNESS [None]
  - OEDEMA [None]
  - PAIN [None]
  - SKIN DISCOLOURATION [None]
